FAERS Safety Report 8386867-3 (Version None)
Quarter: 2012Q2

REPORT INFORMATION
  Report Type: 
  Country: None (occurrence: None)
  Receive Date: 20120525
  Receipt Date: 20120517
  Transmission Date: 20120825
  Serious: Yes (Disabling, Other)
  Sender: FDA-Public Use
  Company Number: US-ASTELLAS-2012US004886

PATIENT
  Age: 65 Year
  Sex: Male
  Weight: 74 kg

DRUGS (3)
  1. ERLOTINIB HYDROCHLORIDE [Suspect]
     Indication: NON-SMALL CELL LUNG CANCER
     Dosage: 100 MG, UID/QD
     Route: 048
     Dates: start: 20120222
  2. NAUSEA MEDICATION [Concomitant]
     Indication: NAUSEA
     Dosage: UNK
     Route: 048
  3. ERLOTINIB HYDROCHLORIDE [Suspect]
     Dosage: 150 MG, UID/QD
     Route: 048
     Dates: start: 20120227

REACTIONS (9)
  - NAUSEA [None]
  - VISUAL IMPAIRMENT [None]
  - MUSCLE SPASMS [None]
  - ASTHENIA [None]
  - PERIPHERAL COLDNESS [None]
  - DIARRHOEA [None]
  - ABDOMINAL PAIN UPPER [None]
  - INCORRECT DOSE ADMINISTERED [None]
  - RASH [None]
